FAERS Safety Report 9912136 (Version 3)
Quarter: 2014Q1

REPORT INFORMATION
  Report Type: Report from Study
  Country: JP (occurrence: JP)
  Receive Date: 20140219
  Receipt Date: 20140303
  Transmission Date: 20141002
  Serious: Yes (Other)
  Sender: FDA-Public Use
  Company Number: JP-BRISTOL-MYERS SQUIBB COMPANY-19466978

PATIENT
  Age: 68 Year
  Sex: Female
  Weight: 37.2 kg

DRUGS (4)
  1. ABILIFY TABS [Suspect]
     Indication: BIPOLAR DISORDER
     Dosage: 17-18DEC:6MG,25-26DEC:15MG,27-10JAN13:18MG,9FEB-13MAR:6MG,14-18MAR:9MG
     Route: 048
     Dates: start: 20121217, end: 20131110
  2. ABILIFY DISCMELT TABS [Suspect]
     Indication: BIPOLAR DISORDER
     Dosage: ORODISPERSIBLE,19-24DEC12:12MG,11-22JAN:18MG,23-27JAN:15MG,28-31JAN:12MG,1FEB-08FEB;19MAR-9SEP:9MG
     Route: 048
     Dates: start: 20121221, end: 20131110
  3. OLANZAPINE [Suspect]
     Indication: BIPOLAR DISORDER
     Route: 048
     Dates: start: 20130111, end: 20130117
  4. LORMETAZEPAM [Concomitant]
     Dosage: TABS
     Dates: start: 20121219, end: 20130117

REACTIONS (3)
  - Femur fracture [Unknown]
  - Fall [Unknown]
  - Drug-induced liver injury [Recovered/Resolved]
